FAERS Safety Report 8523174-X (Version None)
Quarter: 2012Q3

REPORT INFORMATION
  Report Type: 
  Country: None (occurrence: None)
  Receive Date: 20120709
  Receipt Date: 20120624
  Transmission Date: 20120928
  Serious: Yes (Hospitalization, Other)
  Sender: FDA-Public Use
  Company Number: DSU-2012-04864

PATIENT
  Age: 69 Year
  Sex: Female
  Weight: 58.0604 kg

DRUGS (8)
  1. STATIN (INGREDIENTS UNSPECIFIED) (HMG COA REDUCTASE INHIBITORS) [Concomitant]
  2. ZITHROMAX (AZITHROMYCIN) (AZITHROMYCIN) [Concomitant]
  3. ELIDEL [Concomitant]
  4. CLOBETASOL PROPIONATE (CLOBETASOL PROPIONATE) (CLOBETASOL PROPIONATE) [Concomitant]
  5. BENICAR [Suspect]
     Indication: HYPERTENSION
     Dosage: UNKNOWN (QD), PER ORAL UNKNOWN (QD), PER ORAL
     Route: 048
     Dates: start: 20110101, end: 20120513
  6. BENICAR [Suspect]
     Indication: HYPERTENSION
     Dosage: UNKNOWN (QD), PER ORAL UNKNOWN (QD), PER ORAL
     Route: 048
     Dates: start: 20120521, end: 20120521
  7. FLUTICASONE PROPIONATE (FLUTICASONE PROPIONATE) (FLUTICASONE PROPIONAT [Concomitant]
  8. DEXILANT (DEXLANSOPRAZOLE) (DEXLANSOPRAZOLE) [Suspect]
     Indication: ABDOMINAL PAIN UPPER
     Dosage: UNKNOWN (ONCE)
     Dates: start: 20120325, end: 20120325

REACTIONS (24)
  - FAECAL INCONTINENCE [None]
  - HEPATIC LESION [None]
  - MALABSORPTION [None]
  - STEATORRHOEA [None]
  - ASPARTATE AMINOTRANSFERASE INCREASED [None]
  - FATIGUE [None]
  - DEPRESSION [None]
  - HEPATITIS [None]
  - INTESTINAL MUCOSAL ATROPHY [None]
  - PALPITATIONS [None]
  - MIDDLE INSOMNIA [None]
  - WEIGHT DECREASED [None]
  - HYPOPHAGIA [None]
  - NIGHT SWEATS [None]
  - BLOOD PRESSURE DECREASED [None]
  - COLONIC POLYP [None]
  - ALANINE AMINOTRANSFERASE INCREASED [None]
  - BLOOD PRESSURE INCREASED [None]
  - DUODENITIS HAEMORRHAGIC [None]
  - GASTRIC ULCER HAEMORRHAGE [None]
  - DUODENAL ULCER [None]
  - GASTROENTERITIS [None]
  - MESENTERIC LYMPHADENOPATHY [None]
  - HEPATIC CYST [None]
